FAERS Safety Report 24458179 (Version 1)
Quarter: 2024Q4

REPORT INFORMATION
  Report Type: Spontaneous
  Country: PL (occurrence: PL)
  Receive Date: 20241018
  Receipt Date: 20241018
  Transmission Date: 20250114
  Serious: Yes (Other)
  Sender: ACCORD
  Company Number: None

PATIENT
  Age: 70 Year
  Sex: Male
  Weight: 79.5 kg

DRUGS (10)
  1. OXALIPLATIN [Suspect]
     Active Substance: OXALIPLATIN
     Indication: Colon cancer
     Dosage: IN THE FORM OF AN INFUSION
     Dates: start: 20200827, end: 20200827
  2. BACITRACIN ZINC W/POLYMYXIN B SULFA [Concomitant]
     Dosage: 1 X 40MG/0,4ML
     Dates: start: 20200826, end: 20200827
  3. DEXAMETHASONE [Concomitant]
     Active Substance: DEXAMETHASONE
     Dosage: 8MG/2ML PER 24H
     Dates: start: 20200826, end: 20200827
  4. LEUCOVORIN SODIUM [Concomitant]
     Active Substance: LEUCOVORIN SODIUM
     Dosage: INFUSION
     Dates: start: 20200827
  5. FLUOROURACIL [Concomitant]
     Active Substance: FLUOROURACIL
     Dosage: BOLUS
     Dates: start: 20200821
  6. POTASSIUM CHLORIDE [Concomitant]
     Active Substance: POTASSIUM CHLORIDE
     Dosage: 1,5 X 750 MG
     Dates: start: 20200826, end: 20200827
  7. HEPAREGEN [Concomitant]
     Dosage: 3 X 100 MG
     Dates: start: 20200827
  8. ONDANSETRON [Concomitant]
     Active Substance: ONDANSETRON
     Dosage: 1 X 8MG/4ML INJECTION
     Dates: start: 20200827
  9. FLUOROURACIL [Concomitant]
     Active Substance: FLUOROURACIL
     Dosage: INFUSION, IN 0.9% NACL 500ML
     Dates: start: 20200827
  10. HEPAREGEN [Concomitant]
     Dosage: 1 X 100 MG
     Dates: start: 20200826

REACTIONS (4)
  - Blood pressure measurement [Recovering/Resolving]
  - Body temperature decreased [Recovering/Resolving]
  - Chills [Recovering/Resolving]
  - Heart rate increased [Recovering/Resolving]

NARRATIVE: CASE EVENT DATE: 20200828
